FAERS Safety Report 4682945-0 (Version None)
Quarter: 2005Q2

REPORT INFORMATION
  Report Type: 
  Country: None (occurrence: None)
  Receive Date: 20050602
  Receipt Date: 20050321
  Transmission Date: 20051028
  Serious: No
  Sender: FDA-Public Use
  Company Number: USA050393676

PATIENT
  Age: 83 Year
  Sex: Female

DRUGS (5)
  1. CYMBALTA [Suspect]
     Dosage: 60 MG DAY
     Dates: start: 20040901, end: 20040301
  2. PROZAC [Concomitant]
  3. ABILIFY (ARIPIRPAZOLE) [Concomitant]
  4. NAMENDA (MENATINE HYDROCHLORIDE) [Concomitant]
  5. ACTONEL [Concomitant]

REACTIONS (2)
  - CRYING [None]
  - NERVOUSNESS [None]
